FAERS Safety Report 4554084-0 (Version None)
Quarter: 2005Q1

REPORT INFORMATION
  Report Type: 
  Country: None (occurrence: None)
  Receive Date: 20050118
  Receipt Date: 20041021
  Transmission Date: 20050727
  Serious: Yes (Hospitalization, Other)
  Sender: FDA-Public Use
  Company Number: US-MERCK-0410USA03330

PATIENT
  Age: 74 Year
  Sex: Male
  Weight: 102 kg

DRUGS (9)
  1. VIOXX [Suspect]
     Indication: BACK PAIN
     Route: 048
     Dates: end: 20001212
  2. VIOXX [Suspect]
     Route: 048
     Dates: start: 20001213, end: 20010308
  3. VIOXX [Suspect]
     Route: 048
     Dates: start: 20010308
  4. VERAPAMIL MSD LP [Concomitant]
     Route: 048
  5. IMDUR [Concomitant]
     Route: 065
  6. PRAZOSIN-BC [Concomitant]
     Route: 065
  7. ZOCOR [Concomitant]
     Route: 048
  8. ATACAND [Concomitant]
     Route: 065
  9. HYDROCHLOROTHIAZIDE [Concomitant]
     Route: 065

REACTIONS (44)
  - ABSCESS LIMB [None]
  - ANAEMIA [None]
  - ASTHENIA [None]
  - ATRIAL FIBRILLATION [None]
  - BIFASCICULAR BLOCK [None]
  - BILE DUCT OBSTRUCTION [None]
  - BILE DUCT STONE [None]
  - BILIARY NEOPLASM [None]
  - BRADYCARDIA [None]
  - CARCINOMA IN SITU [None]
  - CARDIAC FAILURE CONGESTIVE [None]
  - CAROTID ARTERY STENOSIS [None]
  - CELLULITIS [None]
  - CEREBROVASCULAR ACCIDENT [None]
  - CHOLECYSTITIS [None]
  - CHOLELITHIASIS [None]
  - CORONARY ARTERY ATHEROSCLEROSIS [None]
  - DEHYDRATION [None]
  - DEPRESSION POSTOPERATIVE [None]
  - DRESSLER'S SYNDROME [None]
  - DUODENAL ULCER [None]
  - DYSGEUSIA [None]
  - FLUID RETENTION [None]
  - GASTRITIS [None]
  - GASTROINTESTINAL HAEMORRHAGE [None]
  - HYPERLIPIDAEMIA [None]
  - HYPERTENSION [None]
  - HYPOTENSION [None]
  - HYPOTHYROIDISM [None]
  - INFECTION [None]
  - KNEE ARTHROPLASTY [None]
  - MYALGIA [None]
  - MYOCARDIAL INFARCTION [None]
  - NAUSEA [None]
  - PANCREATITIS ACUTE [None]
  - PANCREATITIS CHRONIC [None]
  - PLEURAL EFFUSION [None]
  - PROSTATE CANCER [None]
  - PULMONARY CONGESTION [None]
  - RENAL FAILURE [None]
  - SINUS ARRHYTHMIA [None]
  - URINARY RETENTION [None]
  - URINARY TRACT INFECTION [None]
  - WEIGHT INCREASED [None]
